FAERS Safety Report 9206738 (Version 1)
Quarter: 2013Q1

REPORT INFORMATION
  Report Type: Spontaneous
  Country: US (occurrence: None)
  Receive Date: 20120731
  Receipt Date: 20120731
  Transmission Date: 20140127
  Serious: Yes (Other)
  Sender: FDA-Public Use
  Company Number: AMAG201203042

PATIENT
  Age: 89 Year
  Sex: Female
  Weight: 58 kg

DRUGS (16)
  1. FERAHEME (FERUMOXYTOL) INJECTION, 510MG [Suspect]
     Indication: IRON DEFICIENCY ANAEMIA
     Dosage: SINGLE?
     Route: 042
     Dates: start: 20120530, end: 20120530
  2. TYLENOL (PARACETAMOL) [Concomitant]
  3. LORAZEPAM (LORAZEPAM) [Concomitant]
  4. OSTEO BI-FLEX (CHONODROITIN SULFATE, GLUCOSAMINE HYDROCHLORIDE) [Concomitant]
  5. TIKOSYN (DOFETILIDE) [Concomitant]
  6. MULTIVITAMIN (VITAMINS NOS) [Concomitant]
  7. ASPIRIN (ACETYLSALICYLIC ACID) [Concomitant]
  8. FLUOXETINE (FLUOXETINE HYDROCHLORIDE) [Concomitant]
  9. SIMVASTATIN (SIMVASTATIN) [Concomitant]
  10. LOSARTAN (LOSARTAN) [Concomitant]
  11. MOBIC (MELOXICAM) [Concomitant]
  12. NEXIUM (ESOMEPRAZOLE MAGNESIUM) [Concomitant]
  13. METOPROLOL (METOPROLOL TARTRATE) [Concomitant]
  14. TUMS (CALCIUM CARBONATE, MAGNESIUM CARBONATE, MAGNESIUM TRISILICATE) [Concomitant]
  15. VITAMIN C [Concomitant]
  16. VITAMIN D (COLECALCIFEROL) [Concomitant]

REACTIONS (7)
  - Hypersensitivity [None]
  - Hypotension [None]
  - Unresponsive to stimuli [None]
  - Bradycardia [None]
  - Dyspepsia [None]
  - Back pain [None]
  - Nausea [None]
